FAERS Safety Report 14308226 (Version 2)
Quarter: 2018Q1

REPORT INFORMATION
  Report Type: Report from Study
  Country: US (occurrence: US)
  Receive Date: 20171220
  Receipt Date: 20180213
  Transmission Date: 20180509
  Serious: Yes (Hospitalization)
  Sender: FDA-Public Use
  Company Number: US-ACTELION-A-NJ2017-164397

PATIENT
  Age: 86 Year
  Sex: Female

DRUGS (1)
  1. OPSUMIT [Suspect]
     Active Substance: MACITENTAN
     Indication: PULMONARY ARTERIAL HYPERTENSION
     Dosage: 10 MG, QD
     Route: 048
     Dates: start: 20171011

REACTIONS (5)
  - Hypotension [Recovered/Resolved]
  - Dyspnoea [Unknown]
  - Blood count abnormal [Recovered/Resolved]
  - Transfusion [Recovered/Resolved]
  - Drug dose omission [Not Recovered/Not Resolved]

NARRATIVE: CASE EVENT DATE: 201711
